FAERS Safety Report 25228567 (Version 1)
Quarter: 2025Q2

REPORT INFORMATION
  Report Type: Spontaneous
  Country: HR (occurrence: HR)
  Receive Date: 20250423
  Receipt Date: 20250423
  Transmission Date: 20250717
  Serious: Yes (Other)
  Sender: RANBAXY
  Company Number: HR-SUN PHARMACEUTICAL INDUSTRIES LTD-2025R1-504836

PATIENT
  Age: 28 Day
  Sex: Male
  Weight: 3.48 kg

DRUGS (3)
  1. DIAZEPAM [Suspect]
     Active Substance: DIAZEPAM
     Indication: Back pain
     Route: 064
  2. ACETAMINOPHEN [Suspect]
     Active Substance: ACETAMINOPHEN
     Indication: Back pain
     Route: 064
  3. DYDROGESTERONE [Suspect]
     Active Substance: DYDROGESTERONE
     Indication: Abortion spontaneous
     Route: 064

REACTIONS (2)
  - Foetal exposure during pregnancy [Unknown]
  - Limb reduction defect [Recovering/Resolving]
